FAERS Safety Report 8694206 (Version 2)
Quarter: 2012Q4

REPORT INFORMATION
  Report Type: 
  Country: FR (occurrence: FR)
  Receive Date: 20120731
  Receipt Date: 20121008
  Transmission Date: 20130627
  Serious: Yes (Hospitalization)
  Sender: FDA-Public Use
  Company Number: FR-SANOFI-AVENTIS-2012SA051918

PATIENT
  Age: 70 Year
  Sex: Female

DRUGS (7)
  1. LASILIX [Interacting]
     Indication: CARDIAC FAILURE NOS
     Route: 048
     Dates: start: 20120224, end: 20120327
  2. ALDACTONE [Interacting]
     Indication: CARDIAC FAILURE NOS
     Route: 048
     Dates: start: 20120308, end: 20120311
  3. ALDACTONE [Interacting]
     Indication: CARDIAC FAILURE NOS
     Route: 048
     Dates: start: 20120312, end: 20120319
  4. KALEORID [Concomitant]
     Indication: DRUG USE FOR UNKNOWN INDICATION
     Route: 048
     Dates: start: 20120316, end: 20120316
  5. ROSUVASTATIN CALCIUM [Concomitant]
     Indication: DRUG USE FOR UNKNOWN INDICATION
     Dosage: long-term therapy.
     Route: 048
  6. CORDARONE [Concomitant]
     Indication: DRUG USE FOR UNKNOWN INDICATION
     Dosage: long-term therapy.
     Route: 048
  7. KARDEGIC [Suspect]
     Indication: DRUG USE FOR UNKNOWN INDICATION
     Dosage: long-term therapy.
     Route: 048

REACTIONS (4)
  - Hyponatraemia [Recovered/Resolved]
  - Hyperkalaemia [Recovered/Resolved]
  - Renal failure acute [Recovering/Resolving]
  - Drug interaction [Unknown]
